FAERS Safety Report 16570318 (Version 2)
Quarter: 2020Q2

REPORT INFORMATION
  Report Type: Spontaneous
  Country: US (occurrence: US)
  Receive Date: 20190715
  Receipt Date: 20200525
  Transmission Date: 20200713
  Serious: Yes (Death, Other)
  Sender: FDA-Public Use
  Company Number: US-ASTRAZENECA-2019SE99826

PATIENT
  Age: 20339 Day
  Sex: Male
  Weight: 116.6 kg

DRUGS (21)
  1. BYDUREON [Suspect]
     Active Substance: EXENATIDE
     Indication: TYPE 2 DIABETES MELLITUS
     Route: 065
     Dates: start: 20161226, end: 20170905
  2. VITAMIN D [Concomitant]
     Active Substance: VITAMIN D NOS
     Dates: start: 20121015
  3. PENICILLIN [Concomitant]
     Active Substance: PENICILLIN
     Dates: start: 20160227
  4. TEMAZEPAM. [Concomitant]
     Active Substance: TEMAZEPAM
     Dates: start: 20160227
  5. SIMVASTATIN. [Concomitant]
     Active Substance: SIMVASTATIN
     Dates: start: 20150114
  6. GLYBURIDE. [Concomitant]
     Active Substance: GLYBURIDE
     Dates: start: 20121112
  7. BYDUREON [Suspect]
     Active Substance: EXENATIDE
     Indication: TYPE 2 DIABETES MELLITUS
     Route: 065
     Dates: start: 20161226, end: 201702
  8. CLINDAMYCIN. [Concomitant]
     Active Substance: CLINDAMYCIN
     Dates: start: 20121115
  9. BYDUREON [Suspect]
     Active Substance: EXENATIDE
     Indication: TYPE 2 DIABETES MELLITUS
     Route: 058
     Dates: start: 20161208, end: 20170202
  10. BENZOYL [Concomitant]
     Dates: start: 20101118
  11. DOXYCYCLINE. [Concomitant]
     Active Substance: DOXYCYCLINE
     Dates: start: 20101118
  12. ZOLPIDEM [Concomitant]
     Active Substance: ZOLPIDEM TARTRATE
     Dates: start: 20170920
  13. PANTOPRAZOLE SODIUM. [Concomitant]
     Active Substance: PANTOPRAZOLE SODIUM
     Dates: start: 20170821
  14. BYDUREON [Suspect]
     Active Substance: EXENATIDE
     Indication: TYPE 2 DIABETES MELLITUS
     Route: 065
     Dates: start: 20161117
  15. METFORMIN [Concomitant]
     Active Substance: METFORMIN HYDROCHLORIDE
  16. HYDROCODONE [Concomitant]
     Active Substance: HYDROCODONE
     Dates: start: 20110110
  17. ACETAMINOPHEN. [Concomitant]
     Active Substance: ACETAMINOPHEN
     Dates: start: 20110110
  18. GABAPENTIN. [Concomitant]
     Active Substance: GABAPENTIN
     Dates: start: 20100611
  19. ANDRODERM [Concomitant]
     Active Substance: TESTOSTERONE
     Dates: start: 20101118
  20. VIAGRA [Concomitant]
     Active Substance: SILDENAFIL CITRATE
     Dates: start: 20121115
  21. LISINOPRIL. [Concomitant]
     Active Substance: LISINOPRIL
     Dates: start: 20150114

REACTIONS (5)
  - Pancreatic carcinoma metastatic [Fatal]
  - Pancreatic carcinoma [Unknown]
  - Anxiety [Unknown]
  - Depression [Unknown]
  - Vision blurred [Unknown]

NARRATIVE: CASE EVENT DATE: 20170808
